FAERS Safety Report 11679341 (Version 2)
Quarter: 2015Q4

REPORT INFORMATION
  Report Type: Spontaneous
  Country: US (occurrence: US)
  Receive Date: 20151027
  Receipt Date: 20151104
  Transmission Date: 20160304
  Serious: No
  Sender: FDA-Public Use
  Company Number: US-ELI_LILLY_AND_COMPANY-US201003005331

PATIENT
  Age: 80 Year
  Sex: Female

DRUGS (3)
  1. FORTEO [Suspect]
     Active Substance: TERIPARATIDE
     Dosage: 20 UG, DAILY (1/D)
  2. FORTEO [Suspect]
     Active Substance: TERIPARATIDE
     Indication: OSTEOPOROSIS
     Dosage: 20 UG, DAILY (1/D)
     Dates: start: 200909
  3. PREDNISONE. [Concomitant]
     Active Substance: PREDNISONE
     Indication: CHRONIC OBSTRUCTIVE PULMONARY DISEASE

REACTIONS (15)
  - Pollakiuria [Unknown]
  - Headache [Not Recovered/Not Resolved]
  - Dizziness [Unknown]
  - Constipation [Unknown]
  - Asthma [Unknown]
  - Cough [Unknown]
  - Blood pressure increased [Unknown]
  - Arthritis [Unknown]
  - Nausea [Unknown]
  - Cardiac disorder [Unknown]
  - PO2 increased [Unknown]
  - Tenderness [Unknown]
  - Nasopharyngitis [Unknown]
  - Paranasal sinus hypersecretion [Unknown]
  - Injection site bruising [Unknown]

NARRATIVE: CASE EVENT DATE: 2010
